FAERS Safety Report 4718767-1 (Version None)
Quarter: 2005Q3

REPORT INFORMATION
  Report Type: 
  Country: None (occurrence: None)
  Receive Date: 20050719
  Receipt Date: 20041217
  Transmission Date: 20060218
  Serious: Yes (Hospitalization, Other)
  Sender: FDA-Public Use
  Company Number: 2004239031US

PATIENT
  Age: 73 Year
  Sex: Male
  Weight: 79.8331 kg

DRUGS (2)
  1. CELEBREX [Suspect]
     Indication: ILL-DEFINED DISORDER
     Dosage: 200 MG
     Dates: start: 19980815
  2. GLUCOSAMINE (GLUCOSAMINE) [Concomitant]

REACTIONS (1)
  - MYOCARDIAL INFARCTION [None]
